FAERS Safety Report 21713293 (Version 1)
Quarter: 2022Q4

REPORT INFORMATION
  Report Type: Report from Study
  Country: US (occurrence: US)
  Receive Date: 20221212
  Receipt Date: 20221212
  Transmission Date: 20230113
  Serious: Yes (Other)
  Sender: FDA-Public Use
  Company Number: US-MYLANLABS-PV202200044590

PATIENT
  Sex: Female

DRUGS (4)
  1. LYRICA [Suspect]
     Active Substance: PREGABALIN
     Indication: Nerve injury
     Dosage: 150 MILLIGRAM, BID (TAKE 1 CAPSULE (150 MG TOTAL) BY MOUTH 2 (TWO) TIMES DAILY)
     Route: 048
  2. LYRICA [Suspect]
     Active Substance: PREGABALIN
     Indication: Neuralgia
  3. LYRICA [Suspect]
     Active Substance: PREGABALIN
     Indication: Drug level therapeutic
  4. LYRICA [Suspect]
     Active Substance: PREGABALIN
     Indication: Arthralgia

REACTIONS (3)
  - Foot operation [Unknown]
  - Localised infection [Unknown]
  - COVID-19 [Unknown]
